FAERS Safety Report 16042722 (Version 1)
Quarter: 2019Q2

REPORT INFORMATION
  Report Type: Spontaneous
  Country: US (occurrence: US)
  Receive Date: 20190306
  Receipt Date: 20190306
  Transmission Date: 20190711
  Serious: Yes (Hospitalization, Disabling)
  Sender: FDA-Public Use
  Company Number: None

PATIENT
  Sex: Female

DRUGS (15)
  1. CYMBALTA 20MG CAPS [Concomitant]
     Dates: start: 20160323
  2. FOLIC ACID 1MG TABLETS [Concomitant]
     Active Substance: FOLIC ACID
     Dates: start: 20160323
  3. ENBREL [Suspect]
     Active Substance: ETANERCEPT
     Indication: ANKYLOSING SPONDYLITIS
     Dosage: ?          OTHER FREQUENCY:EVERY WEEK;?
     Route: 058
  4. OMEPRAZOLE 40MG CAPS [Concomitant]
     Dates: start: 20170717
  5. METHOCARBAMOL 500MG TABLETS [Concomitant]
     Dates: start: 20160323
  6. CALCIFEROL DRO 8000/ML [Concomitant]
     Dates: start: 20160323
  7. HYDROCODONE/APAP 5-325MG TABLETS [Concomitant]
     Dates: start: 20160323
  8. CRESTOR 10MG TABLETS [Concomitant]
     Dates: start: 20160323
  9. MELOXICAM 15MG TABLETS [Concomitant]
     Dates: start: 20170717
  10. DILTIAZEM 30MG TABLETS [Concomitant]
     Active Substance: DILTIAZEM
     Dates: start: 20160323
  11. TRAMADOL 50MG TABLETS [Concomitant]
     Active Substance: TRAMADOL HYDROCHLORIDE
     Dates: start: 20160323
  12. CARVEDILOL 3.125MG TABLETS [Concomitant]
     Dates: start: 20160323
  13. METHOTREXATE 2.5MG TABLETS [Concomitant]
     Active Substance: METHOTREXATE
     Dates: start: 20160323
  14. SULFASALAZINE 500MG TABLETS [Concomitant]
     Dates: start: 20160323
  15. TRAZADONE 50MG TABLETS [Concomitant]
     Dates: start: 20160323

REACTIONS (1)
  - Cerebrovascular accident [None]
